FAERS Safety Report 8240371-1 (Version None)
Quarter: 2012Q1

REPORT INFORMATION
  Report Type: 
  Country: None (occurrence: None)
  Receive Date: 20120328
  Receipt Date: 20120322
  Transmission Date: 20120608
  Serious: Yes (Death)
  Sender: FDA-Public Use
  Company Number: JP-PFIZER INC-2012076370

PATIENT
  Age: 69 Year
  Sex: Male
  Weight: 54 kg

DRUGS (8)
  1. TEMSIROLIMUS [Suspect]
     Indication: RENAL CELL CARCINOMA
     Dosage: 25 MG, UNK
     Dates: start: 20110726
  2. LOXONIN [Concomitant]
     Dosage: 60 MG, AS NEEDED
     Route: 048
  3. CODEINE PHOSPHATE [Concomitant]
     Dosage: 1 G, AS NEEDED
     Route: 048
  4. OXYCONTIN [Concomitant]
     Dosage: 10-20 MG TWICE DAILY
     Route: 048
     Dates: start: 20110728
  5. PROCHLORPERAZINE [Concomitant]
     Dosage: 15 MG, 2X/WEEK
     Route: 048
     Dates: start: 20110728
  6. RESTAMIN [Concomitant]
     Indication: PROPHYLAXIS
     Dosage: 50 MG, 1X/DAY
     Route: 048
  7. CLEANAL [Concomitant]
     Dosage: 400 MG, 2X/DAY
     Route: 048
     Dates: start: 20110728
  8. MAGMITT [Concomitant]
     Dosage: 1.5 G, 3X/DAY
     Route: 048
     Dates: start: 20110728

REACTIONS (1)
  - DEATH [None]
